FAERS Safety Report 14046310 (Version 2)
Quarter: 2018Q1

REPORT INFORMATION
  Report Type: Spontaneous
  Country: FR (occurrence: FR)
  Receive Date: 20171005
  Receipt Date: 20180305
  Transmission Date: 20180508
  Serious: Yes (Life-Threatening, Hospitalization, Other)
  Sender: FDA-Public Use
  Company Number: FR-JNJFOC-20171000738

PATIENT
  Age: 45 Year
  Sex: Male
  Weight: 80 kg

DRUGS (2)
  1. STELARA [Suspect]
     Active Substance: USTEKINUMAB
     Indication: PSORIATIC ARTHROPATHY
     Route: 058
     Dates: start: 20160201, end: 20170406
  2. COSENTYX [Suspect]
     Active Substance: SECUKINUMAB
     Indication: PSORIATIC ARTHROPATHY
     Route: 058
     Dates: start: 20170701, end: 20170701

REACTIONS (10)
  - Acute myocardial infarction [Recovered/Resolved with Sequelae]
  - Angina pectoris [Unknown]
  - Chest discomfort [Unknown]
  - Pallor [Unknown]
  - Pain in extremity [Unknown]
  - Coronary ostial stenosis [Unknown]
  - Stress [Unknown]
  - Coronary artery stenosis [Unknown]
  - Chest pain [Unknown]
  - Pain [Unknown]

NARRATIVE: CASE EVENT DATE: 20170702
